FAERS Safety Report 6792890-2 (Version None)
Quarter: 2010Q2

REPORT INFORMATION
  Report Type: 
  Country: None (occurrence: None)
  Receive Date: 20100624
  Receipt Date: 20081021
  Transmission Date: 20101027
  Serious: No
  Sender: FDA-Public Use
  Company Number: US-PFIZER INC-2008084300

PATIENT
  Sex: Female
  Weight: 42.3 kg

DRUGS (9)
  1. GEODON [Suspect]
     Indication: DEPRESSION
     Dates: start: 20080501
  2. GEODON [Suspect]
     Indication: ANXIETY
  3. GEODON [Suspect]
     Indication: INSOMNIA
  4. GEODON [Suspect]
     Indication: BIPOLAR DISORDER
  5. KLONOPIN [Concomitant]
  6. COZAAR [Concomitant]
     Indication: HYPERTENSION
  7. ATENOLOL [Concomitant]
     Indication: HYPERTENSION
  8. ZOCOR [Concomitant]
     Indication: BLOOD CHOLESTEROL INCREASED
  9. ECOTRIN [Concomitant]

REACTIONS (7)
  - ABNORMAL DREAMS [None]
  - ANXIETY [None]
  - CONTUSION [None]
  - DEPRESSION [None]
  - DRUG INEFFECTIVE [None]
  - FEELING ABNORMAL [None]
  - INSOMNIA [None]
